FAERS Safety Report 14022616 (Version 1)
Quarter: 2017Q3

REPORT INFORMATION
  Report Type: Spontaneous
  Country: US (occurrence: US)
  Receive Date: 20170928
  Receipt Date: 20170928
  Transmission Date: 20171128
  Serious: No
  Sender: FDA-Public Use
  Company Number: US-SA-2016SA177882

PATIENT
  Sex: Female

DRUGS (1)
  1. AUBAGIO [Suspect]
     Active Substance: TERIFLUNOMIDE
     Indication: MULTIPLE SCLEROSIS
     Route: 065

REACTIONS (7)
  - Gait disturbance [Unknown]
  - Anal incontinence [Unknown]
  - Dizziness [Unknown]
  - Headache [Unknown]
  - Mobility decreased [Unknown]
  - Fall [Unknown]
  - Diarrhoea [Unknown]
